FAERS Safety Report 6924477-2 (Version None)
Quarter: 2010Q3

REPORT INFORMATION
  Report Type: 
  Country: None (occurrence: None)
  Receive Date: 20100811
  Receipt Date: 20100802
  Transmission Date: 20110219
  Serious: Yes (Hospitalization)
  Sender: FDA-Public Use
  Company Number: GER/GER/10/0014900

PATIENT
  Age: 7 Year
  Sex: Female
  Weight: 22 kg

DRUGS (2)
  1. LAMOTRIGINE [Suspect]
     Indication: EPILEPSY
     Dosage: 500 MG, 1 IN 1 D, ORAL
     Route: 048
     Dates: start: 20091001, end: 20100508
  2. RISPERIDONE [Concomitant]

REACTIONS (3)
  - ACUTE ABDOMEN [None]
  - FAECALOMA [None]
  - GASTROINTESTINAL PAIN [None]
